FAERS Safety Report 8710259 (Version 2)
Quarter: 2013Q4

REPORT INFORMATION
  Report Type: Report from Study
  Country: US (occurrence: US)
  Receive Date: 20120807
  Receipt Date: 20131018
  Transmission Date: 20140711
  Serious: Yes (Life-Threatening, Hospitalization, Other)
  Sender: FDA-Public Use
  Company Number: US-BRISTOL-MYERS SQUIBB COMPANY-15264021

PATIENT
  Age: 65 Year
  Sex: Female
  Weight: 36.3 kg

DRUGS (13)
  1. CISPLATIN [Suspect]
     Indication: HEAD AND NECK CANCER
     Dosage: WITHDRAWN 30AUG10
     Route: 042
     Dates: start: 20100816, end: 20100816
  2. 5-FLUOROURACIL [Suspect]
     Indication: HEAD AND NECK CANCER
     Route: 042
     Dates: start: 20100816, end: 20100820
  3. LEVOTHYROXINE [Concomitant]
     Route: 065
  4. ARTIFICIAL TEARS [Concomitant]
     Route: 047
  5. OXYCODONE [Concomitant]
     Indication: PAIN
     Dosage: 1DF= 2 TO 4 TAB AT 4 HOURS AS NEEDED ?5MG
     Route: 048
  6. DEXAMETHASONE [Concomitant]
     Dosage: 2 DF=2TAB 2X/DAY ON DAYS 2-4 POST CISPLAIN?4MG
     Route: 048
  7. EMEND [Concomitant]
     Indication: NAUSEA
     Dosage: 2 TO 3 POST CISPLATIN
     Route: 065
  8. ZOFRAN [Concomitant]
     Indication: NAUSEA
     Dosage: FOR 3 DAYS POST CISPLATIN
     Route: 065
  9. HYPROMELLOSE [Concomitant]
  10. DOCUSATE SODIUM [Concomitant]
  11. MACROGOL [Concomitant]
  12. LIDOCAINE VISCOUS [Concomitant]
  13. PREVACID [Concomitant]

REACTIONS (8)
  - Stomatitis [Recovering/Resolving]
  - Fatigue [Recovered/Resolved]
  - Dehydration [Recovered/Resolved]
  - Nausea [Recovered/Resolved]
  - Leukopenia [Recovered/Resolved]
  - Neutropenia [Recovered/Resolved]
  - Hyperkalaemia [Recovered/Resolved]
  - Atrial fibrillation [Recovered/Resolved]
